FAERS Safety Report 6092208-7 (Version None)
Quarter: 2009Q1

REPORT INFORMATION
  Report Type: 
  Country: None (occurrence: None)
  Receive Date: 20090223
  Receipt Date: 20090223
  Transmission Date: 20090719
  Serious: Yes (Other)
  Sender: FDA-Public Use
  Company Number: None

PATIENT
  Sex: Male
  Weight: 79.3795 kg

DRUGS (1)
  1. CARVEDILOL [Suspect]
     Indication: CARDIAC DISORDER
     Dosage: 25MG TWICE A DAY
     Dates: start: 20080601, end: 20090222

REACTIONS (4)
  - CHEST PAIN [None]
  - HEART RATE INCREASED [None]
  - HYPERTENSION [None]
  - THERAPEUTIC RESPONSE UNEXPECTED WITH DRUG SUBSTITUTION [None]
